FAERS Safety Report 17324879 (Version 1)
Quarter: 2020Q1

REPORT INFORMATION
  Report Type: Spontaneous
  Country: US (occurrence: US)
  Receive Date: 20200110
  Receipt Date: 20200110
  Transmission Date: 20200409
  Serious: No
  Sender: FDA-Public Use
  Company Number: None

PATIENT
  Age: 13 Year
  Sex: Female

DRUGS (1)
  1. MYCOPHENOLATE SUS 200MG/ML [Suspect]
     Active Substance: MYCOPHENOLIC ACID
     Route: 048
     Dates: start: 201901

REACTIONS (3)
  - Product dose omission [None]
  - Malaise [None]
  - Product dispensing error [None]

NARRATIVE: CASE EVENT DATE: 20200110
